FAERS Safety Report 7622797-X (Version None)
Quarter: 2011Q3

REPORT INFORMATION
  Report Type: 
  Country: None (occurrence: None)
  Receive Date: 20110712
  Receipt Date: 20110629
  Transmission Date: 20111222
  Serious: Yes (Hospitalization, Other)
  Sender: FDA-Public Use
  Company Number: US-2011-10069

PATIENT
  Age: 49 Year
  Sex: Female

DRUGS (8)
  1. BUSULFAN [Suspect]
     Indication: LYMPHOMA
     Dosage: 35 MG MILLIGRAM(S), DAILY DOSE, INTRAVENOUS
     Route: 042
     Dates: start: 20101227, end: 20101227
  2. ACYCLOVIR [Concomitant]
  3. NSAID'S [Concomitant]
  4. ETOPOSIDE [Concomitant]
  5. FENTANYL ABZ (FENTANYL) [Concomitant]
  6. LEVAQUIN [Concomitant]
  7. CYCLOPHOSPHAMIDE [Concomitant]
  8. MS CONTIN [Concomitant]

REACTIONS (9)
  - ESCHERICHIA URINARY TRACT INFECTION [None]
  - DYSURIA [None]
  - POLLAKIURIA [None]
  - HYPOTENSION [None]
  - ANAEMIA [None]
  - THROMBOCYTOPENIA [None]
  - DELAYED ENGRAFTMENT [None]
  - PYELONEPHRITIS ACUTE [None]
  - HAEMATURIA [None]
